FAERS Safety Report 7907303-4 (Version None)
Quarter: 2011Q4

REPORT INFORMATION
  Report Type: 
  Country: None (occurrence: None)
  Receive Date: 20111110
  Receipt Date: 20111102
  Transmission Date: 20120403
  Serious: Yes (Death, Hospitalization)
  Sender: FDA-Public Use
  Company Number: US-GLAXOSMITHKLINE-A0949717A

PATIENT
  Age: 88 Year
  Sex: Female

DRUGS (12)
  1. LEVETIRACETAM [Concomitant]
  2. NAMENDA [Concomitant]
  3. VESICARE [Concomitant]
  4. ALPRAZOLAM [Concomitant]
  5. PAXIL [Suspect]
     Dosage: 10MG UNKNOWN
     Route: 065
  6. NORVASC [Concomitant]
  7. LANOXIN [Suspect]
     Indication: PRODUCT USED FOR UNKNOWN INDICATION
     Dosage: .125MG UNKNOWN
     Route: 048
  8. PLAVIX [Concomitant]
  9. PROTONIX [Concomitant]
  10. FENOFIBRATE [Concomitant]
  11. EXELON [Concomitant]
  12. POTASSIUM CHLORIDE [Concomitant]

REACTIONS (3)
  - PNEUMONIA [None]
  - FALL [None]
  - DEATH [None]
